FAERS Safety Report 23650397 (Version 1)
Quarter: 2024Q1

REPORT INFORMATION
  Report Type: Spontaneous
  Country: US (occurrence: None)
  Receive Date: 20240320
  Receipt Date: 20240320
  Transmission Date: 20240409
  Serious: No
  Sender: FDA-Public Use
  Company Number: US-ROCHE-3452261

PATIENT
  Sex: Female

DRUGS (1)
  1. VABYSMO [Suspect]
     Active Substance: FARICIMAB\FARICIMAB-SVOA
     Indication: Product used for unknown indication
     Route: 050

REACTIONS (7)
  - Inflammation [Unknown]
  - Oedema [Unknown]
  - Vision blurred [Unknown]
  - Vitritis [Unknown]
  - Ill-defined disorder [Unknown]
  - Intraocular pressure test [Unknown]
  - Corneal disorder [Unknown]
